FAERS Safety Report 5503732-7 (Version None)
Quarter: 2007Q4

REPORT INFORMATION
  Report Type: 
  Country: None (occurrence: None)
  Receive Date: 20071101
  Receipt Date: 20071017
  Transmission Date: 20080405
  Serious: Yes (Life-Threatening, Hospitalization, Other)
  Sender: FDA-Public Use
  Company Number: US-BAUSCH-2007BL001986

PATIENT
  Age: 72 Year
  Sex: Female
  Weight: 56 kg

DRUGS (18)
  1. SULFACETAMIDE SODIUM [Suspect]
     Indication: CONJUNCTIVITIS ALLERGIC
     Route: 047
     Dates: start: 20070604, end: 20070606
  2. ERYTHROMYCIN [Concomitant]
     Route: 047
  3. NATTOKINASE [Concomitant]
     Dates: end: 20070614
  4. RED YEAST RICE EXTRACT [Concomitant]
     Dates: end: 20070614
  5. VITAMIN E [Concomitant]
     Dates: end: 20070614
  6. ASCORBIC ACID [Concomitant]
     Dates: end: 20070614
  7. MOTRIN [Concomitant]
     Route: 048
     Dates: start: 20040122
  8. ASPIRIN [Concomitant]
     Dates: end: 20070614
  9. CALCIUM [Concomitant]
     Dates: end: 20070614
  10. FISH OIL [Concomitant]
     Dates: end: 20070614
  11. GREEN POWER [Concomitant]
     Dates: end: 20070614
  12. GREEN TEA [Concomitant]
     Dates: end: 20070614
  13. PERCOCET [Concomitant]
     Dates: end: 20070614
  14. PROBIOTIC [Concomitant]
     Dates: end: 20070614
  15. SALMON OIL [Concomitant]
     Dates: end: 20070614
  16. PREDNISOLONE [Concomitant]
     Route: 048
     Dates: start: 20040122, end: 20070607
  17. ZYRTEC [Concomitant]
     Dates: start: 20070122, end: 20070607
  18. WARFARIN SODIUM [Concomitant]

REACTIONS (23)
  - ALBUMIN GLOBULIN RATIO DECREASED [None]
  - BLOOD ALBUMIN DECREASED [None]
  - BLOOD GLUCOSE INCREASED [None]
  - BLOOD PRESSURE INCREASED [None]
  - BLOOD UREA INCREASED [None]
  - BLOOD UREA NITROGEN/CREATININE RATIO INCREASED [None]
  - CELLULITIS ORBITAL [None]
  - CONJUNCTIVITIS [None]
  - FACIAL PAIN [None]
  - GLOBULINS INCREASED [None]
  - HYPERSENSITIVITY [None]
  - IMPAIRED DRIVING ABILITY [None]
  - LACRIMAL GLAND ENLARGEMENT [None]
  - LYMPHOCYTE COUNT DECREASED [None]
  - NEUTROPHIL COUNT INCREASED [None]
  - PHARMACEUTICAL PRODUCT COMPLAINT [None]
  - PLATELET COUNT INCREASED [None]
  - ROAD TRAFFIC ACCIDENT [None]
  - TREATMENT NONCOMPLIANCE [None]
  - VISION BLURRED [None]
  - VISUAL ACUITY REDUCED [None]
  - VISUAL DISTURBANCE [None]
  - WHITE BLOOD CELL COUNT INCREASED [None]
